FAERS Safety Report 8350699-2 (Version None)
Quarter: 2012Q2

REPORT INFORMATION
  Report Type: 
  Country: None (occurrence: None)
  Receive Date: 20120510
  Receipt Date: 20120507
  Transmission Date: 20120825
  Serious: Yes (Death)
  Sender: FDA-Public Use
  Company Number: US-GLAXOSMITHKLINE-A0932589A

PATIENT
  Age: 65 Year
  Sex: Male

DRUGS (6)
  1. INSULIN [Concomitant]
  2. LIPITOR [Concomitant]
  3. TRICOR [Concomitant]
  4. ACCUPRIL [Concomitant]
  5. AVANDIA [Suspect]
     Indication: TYPE 2 DIABETES MELLITUS
     Route: 048
     Dates: start: 20010101, end: 20030101
  6. LOPRESSOR [Concomitant]

REACTIONS (4)
  - CARDIAC DISORDER [None]
  - CARDIAC FAILURE CONGESTIVE [None]
  - CRYPTOGENIC CIRRHOSIS [None]
  - MYOCARDIAL INFARCTION [None]
